FAERS Safety Report 22085411 (Version 2)
Quarter: 2023Q1

REPORT INFORMATION
  Report Type: Spontaneous
  Country: GB (occurrence: GB)
  Receive Date: 20230310
  Receipt Date: 20230322
  Transmission Date: 20230418
  Serious: Yes (Hospitalization, Other)
  Sender: FDA-Public Use
  Company Number: None

PATIENT

DRUGS (8)
  1. ZONISAMIDE [Suspect]
     Active Substance: ZONISAMIDE
     Indication: Epilepsy
     Dosage: 100 MG, BID (200 MG DAILY)
     Route: 048
  2. LAMOTRIGINE [Concomitant]
     Active Substance: LAMOTRIGINE
     Indication: Product used for unknown indication
     Dosage: 200 MG, BID (400 MILLIGRAM DAILY)
  3. LAMOTRIGINE [Concomitant]
     Active Substance: LAMOTRIGINE
     Indication: Product used for unknown indication
     Dosage: 50 MG, QD (50 MILLIGRAM DAILY, NOCTE )
  4. LEVETIRACETAM [Concomitant]
     Active Substance: LEVETIRACETAM
     Indication: Product used for unknown indication
     Dosage: 3 DOSAGE FORM, BID (6 DOSAGE FORMS DAILY)
  5. MIRTAZAPINE [Concomitant]
     Active Substance: MIRTAZAPINE
     Indication: Product used for unknown indication
     Dosage: 1 DOSAGE FORM, QD, 28 TABLET
  6. OMEPRAZOLE [Concomitant]
     Active Substance: OMEPRAZOLE
     Indication: Product used for unknown indication
     Dosage: 1 DOSAGE FORM, QD (1 DOSAGE FORMS DAILY; STRENGTH: 20MG, ONE TO BE TAKEN EACH DAY )
  7. PREGABALIN [Concomitant]
     Active Substance: PREGABALIN
     Indication: Neuralgia
     Dosage: 1 DOSAGE FORM, BID (2 DOSAGE FORMS DAILY; STRENGTH: 75MG, ONE TO BE TAKEN TWICE A DAY - ONLY TAKES W
  8. ZOPICLONE [Concomitant]
     Active Substance: ZOPICLONE
     Indication: Product used for unknown indication
     Dosage: 3.75 MG, QD (3.75 MILLIGRAM DAILY; 3.75MG NOCTE)

REACTIONS (1)
  - Nephrolithiasis [Not Recovered/Not Resolved]
